FAERS Safety Report 21570848 (Version 1)
Quarter: 2022Q4

REPORT INFORMATION
  Report Type: Spontaneous
  Country: US (occurrence: None)
  Receive Date: 20221106
  Receipt Date: 20221106
  Transmission Date: 20230112
  Serious: Yes (Hospitalization)
  Sender: FDA-Public Use
  Company Number: None

PATIENT

DRUGS (1)
  1. FENTANYL\ROPIVACAINE [Suspect]
     Active Substance: FENTANYL\ROPIVACAINE
     Dosage: OTHER STRENGTH : 200/100 UG/ML;?
     Route: 008

REACTIONS (3)
  - Product label confusion [None]
  - Product use complaint [None]
  - Physical product label issue [None]
